FAERS Safety Report 7997796-9 (Version None)
Quarter: 2011Q4

REPORT INFORMATION
  Report Type: 
  Country: None (occurrence: None)
  Receive Date: 20111212
  Receipt Date: 20111207
  Transmission Date: 20120403
  Serious: Yes (Other)
  Sender: FDA-Public Use
  Company Number: 2011028057

PATIENT
  Age: 55 Year
  Sex: Female
  Weight: 119.7496 kg

DRUGS (20)
  1. HIZENTRA [Suspect]
     Indication: IMMUNODEFICIENCY COMMON VARIABLE
     Dosage: (12 G 1X/WEEK, 4 GM 20 ML VIAL:60 ML FOR 1-2 HOURS SUBCUTANEOUS), (4 GM 20 ML VIAL; USING 6 SITES SU
     Route: 058
     Dates: start: 20110304
  2. HIZENTRA [Suspect]
     Indication: IMMUNODEFICIENCY COMMON VARIABLE
     Dosage: (12 G 1X/WEEK, 4 GM 20 ML VIAL:60 ML FOR 1-2 HOURS SUBCUTANEOUS), (4 GM 20 ML VIAL; USING 6 SITES SU
     Route: 058
     Dates: start: 20110203
  3. HIZENTRA [Suspect]
  4. XANAX [Concomitant]
  5. TYLENOL ES (PARACETAMOL) [Concomitant]
  6. PEPCID [Concomitant]
  7. ZYRTEC [Concomitant]
  8. FEXOFENADINE HCL [Concomitant]
  9. SYNTHROID [Concomitant]
  10. CYMBALTA [Concomitant]
  11. LISINOPRIL [Concomitant]
  12. DIPHENHYDRAMINE HCL [Concomitant]
  13. EPIPEN [Concomitant]
  14. BUSPIRONE HCL [Concomitant]
  15. LISINOPRIL HCTZ (PRINZIDE /00977901/) [Concomitant]
  16. IBUPROFEN [Concomitant]
  17. ADVAIR DISKUS 100/50 [Concomitant]
  18. HIZENTRA [Suspect]
  19. ALBUTEROL [Concomitant]
  20. WELLBUTRIN [Concomitant]

REACTIONS (1)
  - RESPIRATORY TRACT INFECTION [None]
